FAERS Safety Report 10272019 (Version 1)
Quarter: 2014Q3

REPORT INFORMATION
  Report Type: Spontaneous
  Country: TW (occurrence: TW)
  Receive Date: 20140702
  Receipt Date: 20140702
  Transmission Date: 20150326
  Serious: Yes (Hospitalization)
  Sender: FDA-Public Use
  Company Number: PHHY2014TW080114

PATIENT
  Age: 68 Year
  Sex: Female

DRUGS (9)
  1. ENBREL [Concomitant]
     Active Substance: ETANERCEPT
     Dosage: 25 MG, BIW
     Route: 058
     Dates: start: 20110601, end: 201406
  2. PREDNISOLONE. [Concomitant]
     Active Substance: PREDNISOLONE
     Indication: RHEUMATOID ARTHRITIS
     Dosage: UNK UKN, UNK
     Route: 048
  3. LYRICA [Concomitant]
     Active Substance: PREGABALIN
     Indication: RHEUMATOID ARTHRITIS
     Dosage: UNK UKN, UNK
     Route: 048
  4. MTX [Concomitant]
     Active Substance: METHOTREXATE SODIUM
     Dosage: UNK UKN, UNK
     Dates: end: 201406
  5. ULTRACET [Concomitant]
     Active Substance: ACETAMINOPHEN\TRAMADOL HYDROCHLORIDE
     Indication: HIV INFECTION
  6. PREDNISOLONE. [Concomitant]
     Active Substance: PREDNISOLONE
     Indication: HIV INFECTION
  7. ACLASTA [Suspect]
     Active Substance: ZOLEDRONIC ACID
     Dosage: ONE DOSE PER YEAR
     Route: 042
     Dates: start: 201105
  8. LYRICA [Concomitant]
     Active Substance: PREGABALIN
     Indication: HIV INFECTION
  9. ULTRACET [Concomitant]
     Active Substance: ACETAMINOPHEN\TRAMADOL HYDROCHLORIDE
     Indication: RHEUMATOID ARTHRITIS
     Dosage: UNK UKN, UNK
     Route: 048

REACTIONS (4)
  - Gingival inflammation [Unknown]
  - Osteonecrosis of jaw [Unknown]
  - Malaise [Unknown]
  - Toothache [Not Recovered/Not Resolved]
